FAERS Safety Report 19191223 (Version 1)
Quarter: 2021Q2

REPORT INFORMATION
  Report Type: Spontaneous
  Country: US (occurrence: US)
  Receive Date: 20210428
  Receipt Date: 20210428
  Transmission Date: 20210717
  Serious: Yes (Other)
  Sender: FDA-Public Use
  Company Number: NVSC2021US089145

PATIENT

DRUGS (2)
  1. FEMARA [Suspect]
     Active Substance: LETROZOLE
     Indication: PRODUCT USED FOR UNKNOWN INDICATION
     Dosage: UNK (CYCLE IS 21 DAYS ON, 7 DAYS OFF)
     Route: 065
  2. IBRANCE [Concomitant]
     Active Substance: PALBOCICLIB
     Indication: BREAST CANCER METASTATIC
     Dosage: 125 MG, QD
     Route: 065
     Dates: start: 20210306

REACTIONS (7)
  - Pain [Unknown]
  - Fatigue [Unknown]
  - Cancer pain [Unknown]
  - Spinal cord neoplasm [Unknown]
  - Somnolence [Unknown]
  - Dyspepsia [Unknown]
  - Decreased appetite [Unknown]
